FAERS Safety Report 5243305-7 (Version None)
Quarter: 2007Q1

REPORT INFORMATION
  Report Type: 
  Country: None (occurrence: None)
  Receive Date: 20070215
  Receipt Date: 20070131
  Transmission Date: 20070707
  Serious: Yes (Life-Threatening, Hospitalization)
  Sender: FDA-Public Use
  Company Number: 235872

PATIENT
  Age: 52 Year
  Sex: Female

DRUGS (4)
  1. MABTHERA(RITUXIMAB) CONC FOR SOLUTION FOR INFUSION [Suspect]
     Indication: B-CELL LYMPHOMA
     Dates: start: 20070108
  2. CISPLATIN [Suspect]
     Indication: B-CELL LYMPHOMA
     Dates: start: 20070108
  3. CYTARABINE [Suspect]
     Indication: B-CELL LYMPHOMA
     Dates: start: 20070108
  4. DEXAMETHASONE TAB [Suspect]
     Indication: B-CELL LYMPHOMA
     Dates: start: 20070108

REACTIONS (1)
  - CEREBROVASCULAR ACCIDENT [None]
